FAERS Safety Report 7395863-4 (Version None)
Quarter: 2011Q2

REPORT INFORMATION
  Report Type: 
  Country: None (occurrence: None)
  Receive Date: 20110405
  Receipt Date: 20110328
  Transmission Date: 20111010
  Serious: Yes (Hospitalization, Other)
  Sender: FDA-Public Use
  Company Number: US-AMGEN-USASP2011016586

PATIENT
  Sex: Female

DRUGS (2)
  1. ZEMPLAR [Concomitant]
  2. SENSIPAR [Suspect]
     Indication: HYPERPARATHYROIDISM SECONDARY

REACTIONS (3)
  - CHOLECYSTITIS [None]
  - BLOOD CALCIUM INCREASED [None]
  - HYPOPHAGIA [None]
